FAERS Safety Report 10642582 (Version 1)
Quarter: 2014Q4

REPORT INFORMATION
  Report Type: Spontaneous
  Country: US (occurrence: None)
  Receive Date: 20141121
  Receipt Date: 20141121
  Transmission Date: 20150529
  Serious: No
  Sender: FDA-Public Use
  Company Number: 163-10004-14091836

PATIENT
  Age: 39 Year
  Sex: Female
  Weight: 68.04 kg

DRUGS (3)
  1. OTEZLA [Suspect]
     Active Substance: APREMILAST
     Indication: PSORIATIC ARTHROPATHY
     Route: 048
     Dates: start: 20140523
  2. CEFTIN (CEFUROXIME AXETIL) [Concomitant]
  3. PREDNISONE. [Concomitant]
     Active Substance: PREDNISONE

REACTIONS (6)
  - Ear discomfort [None]
  - Paranasal sinus discomfort [None]
  - Nasal congestion [None]
  - Upper respiratory tract infection [None]
  - Cough [None]
  - Headache [None]

NARRATIVE: CASE EVENT DATE: 20140709
